FAERS Safety Report 8530568-5 (Version None)
Quarter: 2012Q3

REPORT INFORMATION
  Report Type: 
  Country: None (occurrence: None)
  Receive Date: 20120723
  Receipt Date: 20120702
  Transmission Date: 20120928
  Serious: Yes (Other)
  Sender: FDA-Public Use
  Company Number: US-009507513-1206USA03932

PATIENT

DRUGS (1)
  1. SINGULAIR [Suspect]
     Indication: ASTHMA
     Route: 048
     Dates: start: 20120213, end: 20120226

REACTIONS (6)
  - AGITATION [None]
  - ABNORMAL BEHAVIOUR [None]
  - EDUCATIONAL PROBLEM [None]
  - HOSTILITY [None]
  - AGGRESSION [None]
  - IRRITABILITY [None]
